FAERS Safety Report 15619060 (Version 2)
Quarter: 2018Q4

REPORT INFORMATION
  Report Type: Report from Study
  Country: None (occurrence: US)
  Receive Date: 20181114
  Receipt Date: 20181130
  Transmission Date: 20190205
  Serious: Yes (Hospitalization, Other)
  Sender: FDA-Public Use
  Company Number: US-ABBVIE-18K-163-2553990-00

PATIENT
  Age: 15 Year
  Sex: Male

DRUGS (5)
  1. HUMIRA [Suspect]
     Active Substance: ADALIMUMAB
     Dosage: CITRATE FREE
     Route: 058
     Dates: start: 20180904, end: 20180904
  2. HUMIRA [Suspect]
     Active Substance: ADALIMUMAB
     Dosage: CITRATE FREE
     Route: 058
     Dates: start: 2018, end: 20181029
  3. HUMIRA [Suspect]
     Active Substance: ADALIMUMAB
     Dosage: CITRATE FREE
     Route: 058
     Dates: start: 20181110, end: 20181110
  4. HUMIRA [Suspect]
     Active Substance: ADALIMUMAB
     Dosage: CITRATE FREE
     Route: 058
     Dates: start: 20181121
  5. HUMIRA [Suspect]
     Active Substance: ADALIMUMAB
     Indication: CROHN^S DISEASE
     Dosage: CITRATE FREE
     Route: 058
     Dates: start: 20180821, end: 20180821

REACTIONS (15)
  - Testicular torsion [Unknown]
  - Testicular pain [Unknown]
  - White blood cell count increased [Recovering/Resolving]
  - Fear [Recovering/Resolving]
  - Loss of personal independence in daily activities [Recovering/Resolving]
  - Insomnia [Recovering/Resolving]
  - Nasopharyngitis [Recovering/Resolving]
  - Crohn^s disease [Unknown]
  - Frequent bowel movements [Recovering/Resolving]
  - Penile swelling [Recovered/Resolved]
  - Chills [Unknown]
  - Lymphadenopathy [Unknown]
  - Depressed mood [Recovering/Resolving]
  - Inflammatory marker increased [Recovering/Resolving]
  - Groin pain [Unknown]

NARRATIVE: CASE EVENT DATE: 2018
